FAERS Safety Report 16527590 (Version 1)
Quarter: 2019Q3

REPORT INFORMATION
  Report Type: Spontaneous
  Country: GB (occurrence: GB)
  Receive Date: 20190703
  Receipt Date: 20190703
  Transmission Date: 20191004
  Serious: Yes (Other)
  Sender: FDA-Public Use
  Company Number: GB-PURDUE-GBR-2019-0067685

PATIENT
  Age: 35 Year
  Sex: Female

DRUGS (1)
  1. NON-PMN MORPHINE SULFATE [Suspect]
     Active Substance: MORPHINE SULFATE
     Indication: BACK PAIN
     Dosage: UNK (SOLUTION FOR INJECTION)
     Route: 065

REACTIONS (3)
  - Premature baby [Recovered/Resolved]
  - Exposure during pregnancy [Unknown]
  - Acute aortic syndrome [Unknown]
